FAERS Safety Report 25569463 (Version 1)
Quarter: 2025Q3

REPORT INFORMATION
  Report Type: Report from Study
  Country: US (occurrence: US)
  Receive Date: 20250716
  Receipt Date: 20250716
  Transmission Date: 20251020
  Serious: Yes (Other)
  Sender: GILEAD
  Company Number: US-GILEAD-2025-0720878

PATIENT
  Sex: Female

DRUGS (1)
  1. SELADELPAR [Suspect]
     Active Substance: SELADELPAR
     Indication: Product used for unknown indication
     Route: 065

REACTIONS (1)
  - Spinal operation [Unknown]
